FAERS Safety Report 16790346 (Version 1)
Quarter: 2019Q4

REPORT INFORMATION
  Report Type: Spontaneous
  Country: US (occurrence: US)
  Receive Date: 20190909
  Receipt Date: 20190909
  Transmission Date: 20200122
  Serious: Yes (Disabling)
  Sender: FDA-Public Use
  Company Number: None

PATIENT
  Age: 80 Year
  Sex: Female
  Weight: 66.6 kg

DRUGS (9)
  1. DICLOFENAC SODIUM TOPICAL GEL [Suspect]
     Active Substance: DICLOFENAC SODIUM
     Indication: NECK PAIN
     Dosage: ?          QUANTITY:1 GEL;?
     Route: 061
     Dates: start: 20190909, end: 20190909
  2. PROBIOTICS [Concomitant]
     Active Substance: PROBIOTICS NOS
  3. MYRBETRIQ [Concomitant]
     Active Substance: MIRABEGRON
  4. ACYCLOVIR. [Concomitant]
     Active Substance: ACYCLOVIR
  5. LAMOTRIGENE [Concomitant]
     Active Substance: LAMOTRIGINE
  6. PROTEOLYTIC ENZYMES [Concomitant]
  7. IBUPROFEN. [Concomitant]
     Active Substance: IBUPROFEN
  8. FEXOFENADINE [Concomitant]
     Active Substance: FEXOFENADINE HYDROCHLORIDE
  9. BUPROPION. [Concomitant]
     Active Substance: BUPROPION

REACTIONS (6)
  - Application site pain [None]
  - Perfume sensitivity [None]
  - Eye swelling [None]
  - Nasal obstruction [None]
  - Allergic respiratory symptom [None]
  - Throat tightness [None]

NARRATIVE: CASE EVENT DATE: 20190909
